FAERS Safety Report 25743255 (Version 2)
Quarter: 2025Q3

REPORT INFORMATION
  Report Type: Spontaneous
  Country: US (occurrence: US)
  Receive Date: 20250830
  Receipt Date: 20250926
  Transmission Date: 20251020
  Serious: No
  Sender: UNITED THERAPEUTICS
  Company Number: US-UNITED THERAPEUTICS-UNT-2025-012596

PATIENT
  Age: 73 Year
  Sex: Female

DRUGS (8)
  1. TYVASO [Suspect]
     Active Substance: TREPROSTINIL
     Indication: Pulmonary arterial hypertension
     Dosage: 30 ?G, QID
  2. TYVASO [Suspect]
     Active Substance: TREPROSTINIL
     Dosage: 54 ?G, QID
  3. TYVASO [Suspect]
     Active Substance: TREPROSTINIL
     Dosage: 72 ?G, QID
  4. TYVASO [Suspect]
     Active Substance: TREPROSTINIL
     Dosage: 60 ?G, QID
     Dates: end: 202501
  5. TYVASO [Suspect]
     Active Substance: TREPROSTINIL
     Dosage: UNK, QID
     Dates: start: 202503, end: 2025
  6. TYVASO [Suspect]
     Active Substance: TREPROSTINIL
     Dosage: 72 ?G, QID
     Dates: start: 2025, end: 2025
  7. TYVASO [Suspect]
     Active Substance: TREPROSTINIL
     Dosage: 60 ?G, QID
     Dates: start: 2025
  8. TYVASO [Suspect]
     Active Substance: TREPROSTINIL

REACTIONS (5)
  - Cough [Unknown]
  - Throat irritation [Unknown]
  - Fatigue [Unknown]
  - Peripheral swelling [Unknown]
  - Product use issue [Recovered/Resolved]

NARRATIVE: CASE EVENT DATE: 20250101
